FAERS Safety Report 24020580 (Version 1)
Quarter: 2024Q2

REPORT INFORMATION
  Report Type: Report from Study
  Country: CA (occurrence: CA)
  Receive Date: 20240627
  Receipt Date: 20240627
  Transmission Date: 20240716
  Serious: Yes (Other)
  Sender: FDA-Public Use
  Company Number: CA-ABBVIE-5459368

PATIENT
  Sex: Female

DRUGS (3)
  1. HUMIRA [Suspect]
     Active Substance: ADALIMUMAB
     Indication: Uveitis
     Route: 058
     Dates: start: 20190726, end: 2023
  2. HUMIRA [Suspect]
     Active Substance: ADALIMUMAB
     Indication: Ankylosing spondylitis
     Route: 058
     Dates: start: 20231215, end: 20240405
  3. HUMIRA [Suspect]
     Active Substance: ADALIMUMAB
     Route: 058
     Dates: start: 2023, end: 20230927

REACTIONS (5)
  - Retinal detachment [Unknown]
  - Arthropathy [Unknown]
  - Cataract [Unknown]
  - Breast conserving surgery [Unknown]
  - Influenza [Unknown]

NARRATIVE: CASE EVENT DATE: 20230101
